FAERS Safety Report 22225274 (Version 1)
Quarter: 2023Q2

REPORT INFORMATION
  Report Type: Report from Study
  Country: MX (occurrence: MX)
  Receive Date: 20230418
  Receipt Date: 20230418
  Transmission Date: 20230721
  Serious: Yes (Death, Hospitalization)
  Sender: FDA-Public Use
  Company Number: MX-002147023-NVSC2023MX087881

PATIENT
  Sex: Female

DRUGS (1)
  1. KISQALI [Suspect]
     Active Substance: RIBOCICLIB
     Indication: Breast cancer
     Dosage: UNK
     Route: 048

REACTIONS (6)
  - Metastases to kidney [Fatal]
  - Metastases to liver [Fatal]
  - Metastases to lung [Fatal]
  - Kidney infection [Fatal]
  - Hepatic cirrhosis [Fatal]
  - Malaise [Unknown]
